FAERS Safety Report 11643845 (Version 1)
Quarter: 2015Q4

REPORT INFORMATION
  Report Type: Spontaneous
  Country: US (occurrence: US)
  Receive Date: 20151020
  Receipt Date: 20151020
  Transmission Date: 20160304
  Serious: No
  Sender: FDA-Public Use
  Company Number: US-BAYER-2015-446943

PATIENT
  Age: 79 Year
  Sex: Male
  Weight: 88.44 kg

DRUGS (5)
  1. TAMSULOSIN [Concomitant]
     Active Substance: TAMSULOSIN
  2. GABAPENTIN. [Concomitant]
     Active Substance: GABAPENTIN
  3. FINASTERIDE. [Concomitant]
     Active Substance: FINASTERIDE
  4. CLARITIN [Suspect]
     Active Substance: LORATADINE
     Indication: UPPER-AIRWAY COUGH SYNDROME
     Dosage: 1 DF, QD
     Route: 048
     Dates: start: 201510
  5. HYDROCHLOROTHIAZIDE. [Concomitant]
     Active Substance: HYDROCHLOROTHIAZIDE

REACTIONS (1)
  - Product use issue [None]

NARRATIVE: CASE EVENT DATE: 201510
